FAERS Safety Report 9180833 (Version 2)
Quarter: 2013Q2

REPORT INFORMATION
  Report Type: Spontaneous
  Country: US (occurrence: None)
  Receive Date: 20120611
  Receipt Date: 20120913
  Transmission Date: 20140414
  Serious: Yes (Disabling)
  Sender: FDA-Public Use
  Company Number: PHEH2012US004960

PATIENT
  Age: 41 Year
  Sex: Female
  Weight: 83.5 kg

DRUGS (9)
  1. EXTAVIA [Suspect]
     Indication: MULTIPLE SCLEROSIS
     Dates: end: 20120215
  2. GABAPENTIN(GABAPENTIN) [Concomitant]
  3. CLARITIN (LORATADINE) [Concomitant]
  4. VITAMIN B NOS (VITAMIN B NOS) [Concomitant]
  5. SKELAXIN (METAXALONE) [Concomitant]
  6. CALCIUM WITH VITAMIN D (CALCIUM PHOSPHATE, CALCIUM LACTATE, ERGOCALCIFEROL) [Concomitant]
  7. BENADRYL/OLD FORM/ (DIPHENHYDRAMINE HYDROCHLORIDE) [Concomitant]
  8. LEVOTHYROXINE (LEVOTHYROXINE) [Concomitant]
  9. VOLTAREN EMULGEL ^NOVARTIS^ (DICLOFENAC DIETHYLAMINE) [Concomitant]

REACTIONS (2)
  - Emotional disorder [None]
  - Crying [None]
